FAERS Safety Report 6653358-7 (Version None)
Quarter: 2010Q1

REPORT INFORMATION
  Report Type: 
  Country: None (occurrence: None)
  Receive Date: 20100326
  Receipt Date: 20100315
  Transmission Date: 20100710
  Serious: Yes (Other)
  Sender: FDA-Public Use
  Company Number: PHHY2010GB16981

PATIENT
  Sex: Female

DRUGS (4)
  1. ESTRADERM [Suspect]
     Indication: HORMONE REPLACEMENT THERAPY
     Dosage: UNK
     Route: 062
  2. ESTRADERM [Suspect]
     Dosage: LOWER DOSE PATCH 25
  3. ESTRADERM [Suspect]
     Indication: HORMONE REPLACEMENT THERAPY
     Dosage: UNSPECIFIED
     Route: 062
  4. ESTRADERM [Suspect]
     Dosage: PATCH 25
     Route: 062

REACTIONS (7)
  - BREAST CYST [None]
  - BREAST DISORDER [None]
  - BREAST MASS [None]
  - BREAST PAIN [None]
  - FEELING ABNORMAL [None]
  - MALAISE [None]
  - TEARFULNESS [None]
